FAERS Safety Report 7054441-7 (Version None)
Quarter: 2010Q4

REPORT INFORMATION
  Report Type: 
  Country: None (occurrence: None)
  Receive Date: 20101020
  Receipt Date: 20101007
  Transmission Date: 20110411
  Serious: Yes (Hospitalization)
  Sender: FDA-Public Use
  Company Number: PHHY2010US66915

PATIENT
  Sex: Female
  Weight: 95 kg

DRUGS (10)
  1. EXJADE [Suspect]
     Indication: THALASSAEMIA BETA
     Dosage: 2500 MG
     Route: 048
     Dates: start: 20100122
  2. PERCOCET [Concomitant]
     Indication: PAIN
     Dosage: 10/325 Q4H PRN
  3. AMITRIPTYLINE HCL [Concomitant]
     Dosage: 25 MG, QD
  4. FOLIC ACID [Concomitant]
     Dosage: 0.1 MG, QD
  5. PRILOSEC [Concomitant]
     Dosage: 20 MG, QD
  6. HYDREA [Concomitant]
     Dosage: 1500 MG DAILY
  7. LISINOPRIL [Concomitant]
     Dosage: 5 MG DAILY
  8. COUMADIN [Concomitant]
     Dosage: 20 MG DAILY
  9. PHENERGAN [Concomitant]
     Indication: NAUSEA
     Dosage: 25 MG Q6H, P.R.N
  10. DURAGESIC-100 [Concomitant]
     Dosage: 50 MCG, Q72H

REACTIONS (3)
  - NASAL CONGESTION [None]
  - PRODUCTIVE COUGH [None]
  - PYREXIA [None]
